FAERS Safety Report 6142994-2 (Version None)
Quarter: 2009Q2

REPORT INFORMATION
  Report Type: 
  Country: None (occurrence: None)
  Receive Date: 20090403
  Receipt Date: 20090323
  Transmission Date: 20091009
  Serious: Yes (Hospitalization, Other)
  Sender: FDA-Public Use
  Company Number: DE-ROCHE-624963

PATIENT
  Sex: Male

DRUGS (5)
  1. XELODA [Suspect]
     Dosage: BI-WEEKLY ADMINISTRATION
     Route: 065
     Dates: start: 20080601, end: 20080801
  2. AVASTIN [Suspect]
     Route: 065
     Dates: start: 20080601, end: 20080801
  3. HUMIRA [Suspect]
     Indication: CROHN'S DISEASE
     Route: 065
  4. OXALIPLATIN [Suspect]
     Dosage: BI-WEEKLY ADMINISTRATION
     Route: 065
     Dates: start: 20080601, end: 20080801
  5. FOLFIRI [Suspect]
     Route: 065
     Dates: start: 20080910

REACTIONS (3)
  - GASTRIC ULCER [None]
  - ODYNOPHAGIA [None]
  - OESOPHAGITIS [None]
